FAERS Safety Report 10028589 (Version 2)
Quarter: 2014Q2

REPORT INFORMATION
  Report Type: Spontaneous
  Country: US (occurrence: US)
  Receive Date: 20140321
  Receipt Date: 20140407
  Transmission Date: 20141212
  Serious: Yes (Hospitalization)
  Sender: FDA-Public Use
  Company Number: US-GLAXOSMITHKLINE-A1065160A

PATIENT
  Age: 88 Year
  Sex: Male

DRUGS (3)
  1. JALYN [Suspect]
     Indication: BENIGN PROSTATIC HYPERPLASIA
     Dosage: 1CAP PER DAY
     Route: 048
     Dates: start: 2011, end: 201311
  2. AVODART [Suspect]
     Indication: BENIGN PROSTATIC HYPERPLASIA
     Dosage: 1CAP PER DAY
     Dates: start: 201311, end: 20140313
  3. UNKNOWN [Concomitant]

REACTIONS (3)
  - Cerebrovascular accident [Unknown]
  - Dysphagia [Unknown]
  - Wrong technique in drug usage process [Unknown]
